FAERS Safety Report 25984604 (Version 1)
Quarter: 2025Q4

REPORT INFORMATION
  Report Type: Spontaneous
  Country: US (occurrence: US)
  Receive Date: 20251031
  Receipt Date: 20251031
  Transmission Date: 20260117
  Serious: Yes (Death, Other)
  Sender: AMGEN
  Company Number: US-AMGEN-USASP2025214677

PATIENT

DRUGS (3)
  1. PANITUMUMAB [Suspect]
     Active Substance: PANITUMUMAB
     Indication: Colorectal cancer metastatic
     Dosage: UNK, Q2WK
     Route: 040
  2. DABRAFENIB [Suspect]
     Active Substance: DABRAFENIB
     Indication: Colorectal cancer metastatic
     Dosage: 150 MILLIGRAM, BID
     Route: 048
  3. TRAMETINIB [Suspect]
     Active Substance: TRAMETINIB
     Indication: Colorectal cancer metastatic
     Dosage: UNK
     Route: 065

REACTIONS (16)
  - Haemorrhage [Fatal]
  - Death [Fatal]
  - Diarrhoea [Unknown]
  - Dermatitis acneiform [Unknown]
  - Nausea [Unknown]
  - Dry skin [Unknown]
  - Pyrexia [Unknown]
  - Fatigue [Unknown]
  - Vomiting [Unknown]
  - Decreased appetite [Unknown]
  - Hypomagnesaemia [Unknown]
  - Rash [Unknown]
  - Constipation [Unknown]
  - Skin toxicity [Unknown]
  - Colorectal cancer [Unknown]
  - Therapy partial responder [Unknown]
